FAERS Safety Report 4972458-0 (Version None)
Quarter: 2006Q2

REPORT INFORMATION
  Report Type: 
  Country: None (occurrence: None)
  Receive Date: 20060413
  Receipt Date: 20050913
  Transmission Date: 20061013
  Serious: Yes (Hospitalization)
  Sender: FDA-Public Use
  Company Number: US-MERCK-0509USA01809

PATIENT
  Age: 41 Year
  Sex: Female
  Weight: 100 kg

DRUGS (2)
  1. VIOXX [Suspect]
     Indication: PAIN IN EXTREMITY
     Route: 048
     Dates: start: 20000101, end: 20020415
  2. TYLENOL (CAPLET) [Concomitant]
     Route: 048

REACTIONS (21)
  - BLOOD PRESSURE INCREASED [None]
  - CARPAL TUNNEL SYNDROME [None]
  - CELLULITIS [None]
  - CHEST DISCOMFORT [None]
  - CHEST PAIN [None]
  - DEEP VEIN THROMBOSIS [None]
  - DEPRESSION [None]
  - DERMATITIS CONTACT [None]
  - DYSPNOEA EXERTIONAL [None]
  - GASTRIC DISORDER [None]
  - GENERAL PHYSICAL HEALTH DETERIORATION [None]
  - HEADACHE [None]
  - HEART VALVE INSUFFICIENCY [None]
  - HIATUS HERNIA [None]
  - INTESTINAL FUNCTIONAL DISORDER [None]
  - MIGRAINE [None]
  - PAIN IN EXTREMITY [None]
  - SINUSITIS [None]
  - TRANSIENT ISCHAEMIC ATTACK [None]
  - UTERINE DISORDER [None]
  - VARICOSE VEIN [None]
